FAERS Safety Report 17030636 (Version 1)
Quarter: 2019Q4

REPORT INFORMATION
  Report Type: Spontaneous
  Country: GB (occurrence: GB)
  Receive Date: 20191114
  Receipt Date: 20191114
  Transmission Date: 20200122
  Serious: Yes (Other)
  Sender: FDA-Public Use
  Company Number: GB-JNJFOC-20191109536

PATIENT
  Age: 77 Year
  Sex: Male
  Weight: 109.76 kg

DRUGS (1)
  1. RIVAROXABAN [Suspect]
     Active Substance: RIVAROXABAN
     Indication: DEEP VEIN THROMBOSIS
     Dosage: 20 MG, QD
     Route: 048
     Dates: start: 20180410

REACTIONS (5)
  - Joint lock [Unknown]
  - Musculoskeletal discomfort [Not Recovered/Not Resolved]
  - Arthralgia [Unknown]
  - Joint stiffness [Unknown]
  - Joint noise [Unknown]

NARRATIVE: CASE EVENT DATE: 20180503
